FAERS Safety Report 24810731 (Version 2)
Quarter: 2025Q4

REPORT INFORMATION
  Report Type: Report from Study
  Country: US (occurrence: US)
  Receive Date: 20250106
  Receipt Date: 20251015
  Transmission Date: 20260118
  Serious: No
  Sender: MERCK SHARP & DOHME LLC
  Company Number: US-009507513-2412USA004056

PATIENT
  Age: 46 Year
  Sex: Male
  Weight: 83.9 kg

DRUGS (38)
  1. WINREVAIR [Suspect]
     Active Substance: SOTATERCEPT-CSRK
     Indication: Pulmonary arterial hypertension
     Dosage: DOSE DESCRIPTION : UNK
     Dates: start: 2024
  2. WINREVAIR [Suspect]
     Active Substance: SOTATERCEPT-CSRK
     Indication: Product used for unknown indication
     Dates: end: 20250124
  3. WINREVAIR [Suspect]
     Active Substance: SOTATERCEPT-CSRK
  4. WINREVAIR [Suspect]
     Active Substance: SOTATERCEPT-CSRK
  5. WINREVAIR [Suspect]
     Active Substance: SOTATERCEPT-CSRK
     Indication: Pulmonary arterial hypertension
     Dosage: SECOND DOSE
     Route: 058
     Dates: start: 202411
  6. WINREVAIR [Suspect]
     Active Substance: SOTATERCEPT-CSRK
     Indication: Product used for unknown indication
  7. WINREVAIR [Suspect]
     Active Substance: SOTATERCEPT-CSRK
  8. WINREVAIR [Suspect]
     Active Substance: SOTATERCEPT-CSRK
  9. REMODULIN [Suspect]
     Active Substance: TREPROSTINIL
     Indication: Pulmonary arterial hypertension
     Dosage: 0.2 UG/KG, SELF FILL WITH 2ML PER CASSETTE; RATE OF 21MCL PER HOUR, CONTINUING
     Route: 058
     Dates: start: 20241125
  10. LOSARTAN POTASSIUM [Concomitant]
     Active Substance: LOSARTAN POTASSIUM
  11. TADALAFIL [Concomitant]
     Active Substance: TADALAFIL
  12. CLONIDINE [Concomitant]
     Active Substance: CLONIDINE
  13. KETOPROFEN [Concomitant]
     Active Substance: KETOPROFEN
  14. BUMETANIDE [Concomitant]
     Active Substance: BUMETANIDE
  15. SPIRONOLACTONE [Concomitant]
     Active Substance: SPIRONOLACTONE
  16. SIMVASTATIN [Concomitant]
     Active Substance: SIMVASTATIN
  17. lidocaine hydrochloride (LIDOCAINE HCL) [Concomitant]
  18. DULOXETINE HYDROCHLORIDE [Concomitant]
     Active Substance: DULOXETINE HYDROCHLORIDE
  19. TACROLIMUS [Concomitant]
     Active Substance: TACROLIMUS
  20. MAGNESIUM [Concomitant]
     Active Substance: MAGNESIUM
  21. AMITRIPTYLINE [Concomitant]
     Active Substance: AMITRIPTYLINE
  22. GABAPENTIN [Concomitant]
     Active Substance: GABAPENTIN
  23. POLOXAMER [Concomitant]
     Active Substance: POLOXAMER
  24. LEVETIRACETAM [Concomitant]
     Active Substance: LEVETIRACETAM
  25. OXYGEN [Concomitant]
     Active Substance: OXYGEN
  26. LOSARTAN POTASSIUM [Concomitant]
     Active Substance: LOSARTAN POTASSIUM
  27. AMLODIPINE BESYLATE [Concomitant]
     Active Substance: AMLODIPINE BESYLATE
  28. FAMOTIDINE [Concomitant]
     Active Substance: FAMOTIDINE
  29. OXYCODONE HYDROCHLORIDE [Concomitant]
     Active Substance: OXYCODONE HYDROCHLORIDE
  30. MYCOPHENOLATE MOFETIL [Concomitant]
     Active Substance: MYCOPHENOLATE MOFETIL
  31. PREDNISONE [Concomitant]
     Active Substance: PREDNISONE
  32. LOPERAMIDE HYDROCHLORIDE [Concomitant]
     Active Substance: LOPERAMIDE HYDROCHLORIDE
  33. IMODIUM [Concomitant]
     Active Substance: LOPERAMIDE HYDROCHLORIDE
  34. SODIUM CHLORIDE [Concomitant]
     Active Substance: SODIUM CHLORIDE
  35. KETAMINE HYDROCHLORIDE [Concomitant]
     Active Substance: KETAMINE HYDROCHLORIDE
  36. LECITHIN [Concomitant]
     Active Substance: LECITHIN
  37. Folic acid dc (Folic acid) [Concomitant]
  38. Vitamin D3 Ol [Concomitant]

REACTIONS (6)
  - Hypotension [Unknown]
  - Dizziness [Recovered/Resolved]
  - Blood iron increased [Unknown]
  - Blood test abnormal [Unknown]
  - Blood glucose increased [Recovered/Resolved]
  - Haemoglobin increased [Recovering/Resolving]

NARRATIVE: CASE EVENT DATE: 20241101
